FAERS Safety Report 24181613 (Version 1)
Quarter: 2024Q3

REPORT INFORMATION
  Report Type: Spontaneous
  Country: US (occurrence: US)
  Receive Date: 20240807
  Receipt Date: 20240807
  Transmission Date: 20241016
  Serious: Yes (Life-Threatening, Other)
  Sender: RISING PHARMACEUTICALS
  Company Number: US-RISINGPHARMA-US-2024RISLIT00274

PATIENT
  Sex: Male
  Weight: 3.17 kg

DRUGS (1)
  1. PYRIDOSTIGMINE BROMIDE EXTENDED RELEASE [Suspect]
     Active Substance: PYRIDOSTIGMINE BROMIDE
     Indication: Congenital myasthenic syndrome
     Route: 048

REACTIONS (6)
  - Bradycardia [Unknown]
  - Respiratory distress [Unknown]
  - Condition aggravated [Unknown]
  - Chorea [Recovered/Resolved]
  - Secretion discharge [Unknown]
  - Drug ineffective [Unknown]
